FAERS Safety Report 4616562-5 (Version None)
Quarter: 2005Q1

REPORT INFORMATION
  Report Type: 
  Country: None (occurrence: None)
  Receive Date: 20050318
  Receipt Date: 20050302
  Transmission Date: 20050727
  Serious: Yes (Death, Hospitalization)
  Sender: FDA-Public Use
  Company Number: L04-USA-07403-37

PATIENT
  Age: 72 Year
  Sex: Female

DRUGS (12)
  1. THEOPHYLLINE [Suspect]
  2. FUROSEMIDE [Concomitant]
  3. ROSIGLITAZONE [Concomitant]
  4. LEVOTHYROXINE [Concomitant]
  5. ASPIRIN [Concomitant]
  6. DOCUSATE SODIUM [Concomitant]
  7. KCL (POTASSIUM CHLORIDE) [Concomitant]
  8. METOCLOPRAMIDE [Concomitant]
  9. ALLOPURINOL [Concomitant]
  10. COLCHICINE [Concomitant]
  11. SIMVASTATIN [Concomitant]
  12. CHOLINE MAGNESIUM SALICYLATE [Concomitant]

REACTIONS (15)
  - ACCIDENTAL OVERDOSE [None]
  - AREFLEXIA [None]
  - BLOOD PRESSURE DECREASED [None]
  - BLOOD PRESSURE DIASTOLIC DECREASED [None]
  - CEREBRAL ARTERY EMBOLISM [None]
  - COMA [None]
  - CONVULSION [None]
  - ELECTROENCEPHALOGRAM ABNORMAL [None]
  - HAEMODIALYSIS [None]
  - HEART RATE INCREASED [None]
  - MEDICATION ERROR [None]
  - NAUSEA [None]
  - PNEUMONIA [None]
  - RENAL FAILURE ACUTE [None]
  - VOMITING [None]
